FAERS Safety Report 13159233 (Version 1)
Quarter: 2017Q1

REPORT INFORMATION
  Report Type: Spontaneous
  Country: PL (occurrence: PL)
  Receive Date: 20170127
  Receipt Date: 20170127
  Transmission Date: 20170428
  Serious: Yes (Other)
  Sender: FDA-Public Use
  Company Number: PL-JNJFOC-20170118619

PATIENT
  Age: 22 Year
  Sex: Male

DRUGS (2)
  1. ABILIFY [Suspect]
     Active Substance: ARIPIPRAZOLE
     Indication: PARANOIA
     Route: 065
  2. RISPOLEPT [Suspect]
     Active Substance: RISPERIDONE
     Indication: PARANOIA
     Route: 065

REACTIONS (7)
  - Emotional poverty [Not Recovered/Not Resolved]
  - Memory impairment [Not Recovered/Not Resolved]
  - Mental impairment [Not Recovered/Not Resolved]
  - Fatigue [Not Recovered/Not Resolved]
  - Indifference [Not Recovered/Not Resolved]
  - Aversion [Not Recovered/Not Resolved]
  - Feeling abnormal [Not Recovered/Not Resolved]
